FAERS Safety Report 21629878 (Version 1)
Quarter: 2022Q4

REPORT INFORMATION
  Report Type: Spontaneous
  Country: US (occurrence: None)
  Receive Date: 20221122
  Receipt Date: 20221122
  Transmission Date: 20230113
  Serious: Yes (Disabling)
  Sender: FDA-Public Use
  Company Number: None

PATIENT
  Age: 68 Year
  Sex: Female
  Weight: 56.25 kg

DRUGS (1)
  1. RECLAST [Suspect]
     Active Substance: ZOLEDRONIC ACID
     Indication: Osteoporosis
     Dates: start: 20210607

REACTIONS (5)
  - Arthritis [None]
  - Knee arthroplasty [None]
  - Arthrofibrosis [None]
  - Post procedural complication [None]
  - Disability [None]

NARRATIVE: CASE EVENT DATE: 20210713
